FAERS Safety Report 6312568-9 (Version None)
Quarter: 2009Q3

REPORT INFORMATION
  Report Type: 
  Country: None (occurrence: None)
  Receive Date: 20090817
  Receipt Date: 20090617
  Transmission Date: 20100115
  Serious: No
  Sender: FDA-Public Use
  Company Number: US-ALLERGAN-0908437US

PATIENT
  Age: 77 Year
  Sex: Female

DRUGS (1)
  1. SANCTURA XR [Suspect]
     Indication: URINARY INCONTINENCE
     Dosage: 60 MG, QAM
     Route: 048
     Dates: start: 20090610

REACTIONS (3)
  - CONSTIPATION [None]
  - DRUG INEFFECTIVE [None]
  - DRY MOUTH [None]
